FAERS Safety Report 5562707-2 (Version None)
Quarter: 2007Q4

REPORT INFORMATION
  Report Type: 
  Country: None (occurrence: None)
  Receive Date: 20071217
  Receipt Date: 20071214
  Transmission Date: 20080405
  Serious: Yes (Hospitalization)
  Sender: FDA-Public Use
  Company Number: GB-BRISTOL-MYERS SQUIBB COMPANY-14015879

PATIENT
  Age: 51 Year
  Sex: Female
  Weight: 71 kg

DRUGS (5)
  1. PACLITAXEL [Suspect]
     Indication: BREAST CANCER
     Dates: start: 20071107
  2. CYCLOPHOSPHAMIDE [Suspect]
     Indication: BREAST CANCER
  3. EPIRUBICIN [Suspect]
     Indication: BREAST CANCER
  4. PROPANOL [Concomitant]
     Dosage: STARTED 15 YEARS AGO
     Route: 048
  5. LORAZEPAM [Concomitant]
     Route: 048

REACTIONS (5)
  - DIARRHOEA [None]
  - MALAISE [None]
  - NEUTROPHIL COUNT DECREASED [None]
  - PRODUCTIVE COUGH [None]
  - PYREXIA [None]
